FAERS Safety Report 4282010-0 (Version None)
Quarter: 2004Q1

REPORT INFORMATION
  Report Type: 
  Country: None (occurrence: None)
  Receive Date: 20040129
  Receipt Date: 20040120
  Transmission Date: 20041129
  Serious: Yes (Death)
  Sender: FDA-Public Use
  Company Number: 04-01-0098

PATIENT
  Sex: Female

DRUGS (3)
  1. ALBUTEROL [Suspect]
  2. CANDESARTAN [Suspect]
  3. BECLOMETHASONE DIPROPIONATE [Suspect]
     Dosage: INHALATION
     Route: 055

REACTIONS (16)
  - ANTEPARTUM HAEMORRHAGE [None]
  - ANURIA [None]
  - BLADDER AGENESIS [None]
  - CONGENITAL FOOT MALFORMATION [None]
  - DRUG INEFFECTIVE [None]
  - FOETAL GROWTH RETARDATION [None]
  - HYPOSPADIAS [None]
  - HYPOTENSION [None]
  - JOINT CONTRACTURE [None]
  - KIDNEY MALFORMATION [None]
  - MATERNAL DRUGS AFFECTING FOETUS [None]
  - MULTIPLE CONGENITAL ABNORMALITIES [None]
  - OLIGOHYDRAMNIOS [None]
  - PULMONARY CONGESTION [None]
  - RENAL HYPERTROPHY [None]
  - SKULL MALFORMATION [None]
